FAERS Safety Report 17812886 (Version 3)
Quarter: 2020Q3

REPORT INFORMATION
  Report Type: Spontaneous
  Country: US (occurrence: US)
  Receive Date: 20200521
  Receipt Date: 20200918
  Transmission Date: 20201102
  Serious: Yes (Death, Other)
  Sender: FDA-Public Use
  Company Number: US-PURDUE PHARMA-USA-2020-0153306

PATIENT
  Sex: Male

DRUGS (4)
  1. TRIGLYCERIDES [Concomitant]
     Indication: DIABETES MELLITUS
  2. OXYCONTIN [Suspect]
     Active Substance: OXYCODONE HYDROCHLORIDE
     Indication: PAIN
     Dosage: 160 MG, BID
     Route: 048
     Dates: end: 20171222
  3. INSULIN [Concomitant]
     Active Substance: INSULIN NOS
     Indication: DIABETES MELLITUS
  4. OXYCODONE HCL CR TABLETS (SIMILAR TO NDA 22?272) [Suspect]
     Active Substance: OXYCODONE HYDROCHLORIDE
     Indication: PRODUCT USED FOR UNKNOWN INDICATION
     Dosage: UNK
     Route: 048

REACTIONS (6)
  - Drug dependence [Unknown]
  - Substance abuse [Unknown]
  - Cardiac operation [Unknown]
  - Depressed mood [Unknown]
  - Cardiac disorder [Fatal]
  - Mental disorder [Unknown]

NARRATIVE: CASE EVENT DATE: 1996
